FAERS Safety Report 11319488 (Version 1)
Quarter: 2015Q3

REPORT INFORMATION
  Report Type: Spontaneous
  Country: JO (occurrence: None)
  Receive Date: 20150727
  Receipt Date: 20150727
  Transmission Date: 20151125
  Serious: Yes (Hospitalization)
  Sender: FDA-Public Use
  Company Number: UCM201507-000509

PATIENT
  Sex: Male
  Weight: 2.21 kg

DRUGS (3)
  1. AMLODIPINE [Suspect]
     Active Substance: AMLODIPINE BESYLATE
     Indication: HYPERTENSION
     Route: 048
  2. PROPRANOLOL [Suspect]
     Active Substance: PROPRANOLOL\PROPRANOLOL HYDROCHLORIDE
     Indication: HYPERTHYROIDISM
     Dosage: 2 MG/KG/DAY, DIVIDED INTO 2 DOSES
  3. CARBIMAZOLE (CARBIMAZOLE) (CARBIMAZOLE) [Concomitant]
     Active Substance: CARBIMAZOLE

REACTIONS (5)
  - Neonatal respiratory distress syndrome [None]
  - Hyperthyroidism [None]
  - Drug interaction [None]
  - Caesarean section [None]
  - Hypotension [None]
